FAERS Safety Report 16385149 (Version 1)
Quarter: 2019Q2

REPORT INFORMATION
  Report Type: Spontaneous
  Country: GB (occurrence: GB)
  Receive Date: 20190603
  Receipt Date: 20190603
  Transmission Date: 20190711
  Serious: Yes (Other)
  Sender: FDA-Public Use
  Company Number: GB-TEVA-2019-GB-1057275

PATIENT
  Age: 33 Year
  Sex: Female
  Weight: 75 kg

DRUGS (12)
  1. LEVOTHYROXINE SODIUM. [Concomitant]
     Active Substance: LEVOTHYROXINE SODIUM
  2. MIRTAZAPINE. [Concomitant]
     Active Substance: MIRTAZAPINE
  3. NITROFURANTOIN. [Suspect]
     Active Substance: NITROFURANTOIN
     Indication: URINARY TRACT INFECTION
     Dosage: 2 DF FOR 1 DAY
     Route: 048
     Dates: start: 20190417, end: 20190419
  4. RANITIDINE. [Concomitant]
     Active Substance: RANITIDINE
  5. SALBUTAMOL [Concomitant]
     Active Substance: ALBUTEROL
  6. FOLIC ACID. [Concomitant]
     Active Substance: FOLIC ACID
  7. DESOGESTREL [Concomitant]
     Active Substance: DESOGESTREL
  8. METOJECT [Concomitant]
     Active Substance: METHOTREXATE SODIUM
  9. LORATADINE. [Concomitant]
     Active Substance: LORATADINE
  10. CLENIL MODULITE [Concomitant]
     Active Substance: BECLOMETHASONE DIPROPIONATE
  11. AMITRIPTYLINE [Concomitant]
     Active Substance: AMITRIPTYLINE
  12. GAVISCON ADVANCE [Concomitant]
     Active Substance: POTASSIUM BICARBONATE\SODIUM ALGINATE

REACTIONS (1)
  - Migraine [Recovered/Resolved with Sequelae]

NARRATIVE: CASE EVENT DATE: 20190418
